FAERS Safety Report 6985109-0 (Version None)
Quarter: 2010Q3

REPORT INFORMATION
  Report Type: 
  Country: None (occurrence: None)
  Receive Date: 20100915
  Receipt Date: 20100907
  Transmission Date: 20110219
  Serious: Yes (Hospitalization)
  Sender: FDA-Public Use
  Company Number: FR-WYE-G06632510

PATIENT
  Sex: Male

DRUGS (8)
  1. EFFEXOR XR [Suspect]
     Route: 048
  2. PERINDOPRIL ERBUMINE [Concomitant]
     Dosage: UNKNOWN
     Route: 048
  3. EFFERALGAN CODEINE [Suspect]
     Route: 048
  4. IRBESARTAN [Concomitant]
     Dosage: UNKNOWN
     Route: 048
  5. AMITRIPTYLINE HCL [Suspect]
     Dosage: 50 MG TOTAL DAILY
     Dates: start: 20100606, end: 20100804
  6. AMITRIPTYLINE HCL [Suspect]
     Dosage: 25 MG TOTAL DAILY
     Dates: start: 20100805, end: 20100807
  7. AMITRIPTYLINE HCL [Suspect]
     Dosage: 12.5 MG TOTAL DAILY
     Dates: start: 20100808, end: 20100809
  8. LEXOMIL [Suspect]
     Route: 048

REACTIONS (3)
  - DIZZINESS [None]
  - FALL [None]
  - MALAISE [None]
